FAERS Safety Report 14176891 (Version 1)
Quarter: 2017Q4

REPORT INFORMATION
  Report Type: Spontaneous
  Country: FR (occurrence: FR)
  Receive Date: 20171110
  Receipt Date: 20171110
  Transmission Date: 20180321
  Serious: Yes (Other)
  Sender: FDA-Public Use
  Company Number: FR-ASTRAZENECA-2017SF02694

PATIENT
  Age: 810 Month
  Sex: Female
  Weight: 80 kg

DRUGS (6)
  1. VENTOLINE [Concomitant]
     Active Substance: ALBUTEROL
  2. ATENOLOL. [Concomitant]
     Active Substance: ATENOLOL
  3. ESCITALOPRAM [Concomitant]
     Active Substance: ESCITALOPRAM OXALATE
  4. SYMBICORT [Suspect]
     Active Substance: BUDESONIDE\FORMOTEROL FUMARATE DIHYDRATE
     Indication: ASTHMA
     Dosage: 400/12 MICROGRAMS,ONE DOSE FORM IN THE MORNING AND ONE DOSE FORM IN THE EVENING
     Route: 055
  5. SPIRIVA [Concomitant]
     Active Substance: TIOTROPIUM BROMIDE MONOHYDRATE
  6. LORAZEPAM. [Concomitant]
     Active Substance: LORAZEPAM

REACTIONS (4)
  - Pruritus [Unknown]
  - Rash erythematous [Recovering/Resolving]
  - Palmoplantar keratoderma [Recovering/Resolving]
  - Psoriasis [Recovering/Resolving]

NARRATIVE: CASE EVENT DATE: 201708
